FAERS Safety Report 19793179 (Version 9)
Quarter: 2022Q3

REPORT INFORMATION
  Report Type: Spontaneous
  Country: CA (occurrence: None)
  Receive Date: 20210906
  Receipt Date: 20220929
  Transmission Date: 20221027
  Serious: Yes (Hospitalization, Disabling, Other)
  Sender: FDA-Public Use
  Company Number: CA-AMGEN-CANSP2021128980

PATIENT
  Age: 41 Year
  Sex: Female
  Weight: 90 kg

DRUGS (394)
  1. METHOTREXATE [Suspect]
     Active Substance: METHOTREXATE
     Indication: Rheumatoid arthritis
     Route: 048
  2. METHOTREXATE [Suspect]
     Active Substance: METHOTREXATE
     Route: 048
  3. METHOTREXATE [Suspect]
     Active Substance: METHOTREXATE
     Route: 048
  4. METHOTREXATE [Suspect]
     Active Substance: METHOTREXATE
     Route: 058
  5. METHOTREXATE [Suspect]
     Active Substance: METHOTREXATE
     Route: 058
  6. METHOTREXATE [Suspect]
     Active Substance: METHOTREXATE
     Route: 058
  7. METHOTREXATE [Suspect]
     Active Substance: METHOTREXATE
     Route: 058
  8. METHOTREXATE [Suspect]
     Active Substance: METHOTREXATE
     Route: 048
  9. METHOTREXATE [Suspect]
     Active Substance: METHOTREXATE
     Route: 048
  10. METHOTREXATE [Suspect]
     Active Substance: METHOTREXATE
     Route: 065
  11. METHOTREXATE [Suspect]
     Active Substance: METHOTREXATE
     Route: 058
  12. METHOTREXATE [Suspect]
     Active Substance: METHOTREXATE
     Route: 065
  13. METHOTREXATE [Suspect]
     Active Substance: METHOTREXATE
     Route: 048
  14. METHOTREXATE [Suspect]
     Active Substance: METHOTREXATE
     Dosage: 12.5 MILLIGRAM (4 EVERY 1 WEEKS)
     Route: 048
  15. METHOTREXATE [Suspect]
     Active Substance: METHOTREXATE
     Dosage: 17.5 MILLIGRAM (4 EVERY 1 WEEKS)
     Route: 048
  16. METHOTREXATE [Suspect]
     Active Substance: METHOTREXATE
     Route: 065
  17. METHOTREXATE [Suspect]
     Active Substance: METHOTREXATE
     Route: 048
  18. METHOTREXATE [Suspect]
     Active Substance: METHOTREXATE
     Route: 048
  19. METHOTREXATE [Suspect]
     Active Substance: METHOTREXATE
     Route: 048
  20. METHOTREXATE [Suspect]
     Active Substance: METHOTREXATE
     Route: 048
  21. METHOTREXATE [Suspect]
     Active Substance: METHOTREXATE
     Dosage: 12.5 MILLIGRAM (4 EVERY 1 WEEKS)
     Route: 048
  22. METHOTREXATE [Suspect]
     Active Substance: METHOTREXATE
     Dosage: 17.5 MILLIGRAM (1 EVERY 1 WEEKS)
     Route: 048
  23. METHOTREXATE [Suspect]
     Active Substance: METHOTREXATE
     Route: 048
  24. METHOTREXATE [Suspect]
     Active Substance: METHOTREXATE
     Route: 048
  25. METHOTREXATE [Suspect]
     Active Substance: METHOTREXATE
     Route: 048
  26. METHOTREXATE [Suspect]
     Active Substance: METHOTREXATE
     Route: 048
  27. METHOTREXATE [Suspect]
     Active Substance: METHOTREXATE
     Route: 048
  28. METHOTREXATE [Suspect]
     Active Substance: METHOTREXATE
     Route: 065
  29. METHOTREXATE [Suspect]
     Active Substance: METHOTREXATE
     Route: 048
  30. METHOTREXATE [Suspect]
     Active Substance: METHOTREXATE
     Route: 065
  31. METHOTREXATE [Suspect]
     Active Substance: METHOTREXATE
     Route: 048
  32. METHOTREXATE [Suspect]
     Active Substance: METHOTREXATE
     Route: 065
  33. METHOTREXATE [Suspect]
     Active Substance: METHOTREXATE
     Route: 058
  34. METHOTREXATE [Suspect]
     Active Substance: METHOTREXATE
     Route: 058
  35. METHOTREXATE [Suspect]
     Active Substance: METHOTREXATE
     Route: 058
  36. METHOTREXATE [Suspect]
     Active Substance: METHOTREXATE
     Route: 058
  37. METHOTREXATE [Suspect]
     Active Substance: METHOTREXATE
     Route: 058
  38. METHOTREXATE [Suspect]
     Active Substance: METHOTREXATE
     Route: 058
  39. METHOTREXATE [Suspect]
     Active Substance: METHOTREXATE
     Route: 058
  40. METHOTREXATE [Suspect]
     Active Substance: METHOTREXATE
     Route: 058
  41. METHOTREXATE [Suspect]
     Active Substance: METHOTREXATE
     Route: 058
  42. METHOTREXATE [Suspect]
     Active Substance: METHOTREXATE
     Route: 058
  43. METHOTREXATE [Suspect]
     Active Substance: METHOTREXATE
     Route: 058
  44. METHOTREXATE [Suspect]
     Active Substance: METHOTREXATE
     Dosage: 10 MILLIGRAM (4 EVERY 1 WEEKS)
     Route: 058
  45. METHOTREXATE [Suspect]
     Active Substance: METHOTREXATE
     Route: 058
  46. METHOTREXATE [Suspect]
     Active Substance: METHOTREXATE
     Dosage: 17.5 MILLIGRAM (4 EVERY 1 WEEKS)
     Route: 058
  47. METHOTREXATE [Suspect]
     Active Substance: METHOTREXATE
     Route: 058
  48. METHOTREXATE [Suspect]
     Active Substance: METHOTREXATE
     Dosage: 15 MILLIGRAM (4 EVERY 1 WEEK)
     Route: 058
  49. METHOTREXATE [Suspect]
     Active Substance: METHOTREXATE
     Route: 058
  50. METHOTREXATE [Suspect]
     Active Substance: METHOTREXATE
     Route: 058
  51. METHOTREXATE [Suspect]
     Active Substance: METHOTREXATE
     Route: 058
  52. METHOTREXATE [Suspect]
     Active Substance: METHOTREXATE
     Route: 058
  53. METHOTREXATE [Suspect]
     Active Substance: METHOTREXATE
     Dosage: 12.5 MILLIGRAM (1 EVERY 1 WEEKS)
     Route: 048
  54. METHOTREXATE [Suspect]
     Active Substance: METHOTREXATE
     Route: 065
  55. ENBREL [Suspect]
     Active Substance: ETANERCEPT
     Indication: Rheumatoid arthritis
     Route: 058
  56. ENBREL [Suspect]
     Active Substance: ETANERCEPT
     Indication: Psoriatic arthropathy
     Route: 058
  57. ENBREL [Suspect]
     Active Substance: ETANERCEPT
     Indication: Psoriasis
     Route: 058
  58. ENBREL [Suspect]
     Active Substance: ETANERCEPT
     Route: 058
  59. ENBREL [Suspect]
     Active Substance: ETANERCEPT
     Dosage: 2 EVERY 1 WEEK
     Route: 065
  60. ENBREL [Suspect]
     Active Substance: ETANERCEPT
     Route: 065
  61. ENBREL [Suspect]
     Active Substance: ETANERCEPT
     Route: 065
  62. ENBREL [Suspect]
     Active Substance: ETANERCEPT
     Route: 065
  63. ENBREL [Suspect]
     Active Substance: ETANERCEPT
     Route: 058
  64. ENBREL [Suspect]
     Active Substance: ETANERCEPT
     Route: 058
  65. ENBREL [Suspect]
     Active Substance: ETANERCEPT
     Route: 065
  66. ENBREL [Suspect]
     Active Substance: ETANERCEPT
     Route: 058
  67. ENBREL [Suspect]
     Active Substance: ETANERCEPT
     Route: 065
  68. ENBREL [Suspect]
     Active Substance: ETANERCEPT
     Route: 065
  69. ENBREL [Suspect]
     Active Substance: ETANERCEPT
     Route: 065
  70. ENBREL [Suspect]
     Active Substance: ETANERCEPT
     Route: 065
  71. ENBREL [Suspect]
     Active Substance: ETANERCEPT
     Dosage: 2 EVERY 1 WEEKS
     Route: 065
  72. ENBREL [Suspect]
     Active Substance: ETANERCEPT
     Dosage: 12 EVERY 1 WEEK
     Route: 065
  73. ENBREL [Suspect]
     Active Substance: ETANERCEPT
     Route: 065
  74. ENBREL [Suspect]
     Active Substance: ETANERCEPT
     Route: 058
  75. INFLIXIMAB [Suspect]
     Active Substance: INFLIXIMAB
     Indication: Psoriatic arthropathy
     Route: 042
  76. INFLIXIMAB [Suspect]
     Active Substance: INFLIXIMAB
     Indication: Rheumatoid arthritis
     Route: 042
  77. INFLIXIMAB [Suspect]
     Active Substance: INFLIXIMAB
     Route: 058
  78. INFLIXIMAB [Suspect]
     Active Substance: INFLIXIMAB
     Route: 042
  79. INFLIXIMAB [Suspect]
     Active Substance: INFLIXIMAB
     Route: 042
  80. INFLIXIMAB [Suspect]
     Active Substance: INFLIXIMAB
     Route: 048
  81. INFLIXIMAB [Suspect]
     Active Substance: INFLIXIMAB
     Route: 042
  82. INFLIXIMAB [Suspect]
     Active Substance: INFLIXIMAB
     Route: 042
  83. INFLIXIMAB [Suspect]
     Active Substance: INFLIXIMAB
     Route: 048
  84. INFLIXIMAB [Suspect]
     Active Substance: INFLIXIMAB
     Route: 042
  85. INFLIXIMAB [Suspect]
     Active Substance: INFLIXIMAB
     Route: 058
  86. INFLIXIMAB [Suspect]
     Active Substance: INFLIXIMAB
     Route: 048
  87. RITUXIMAB [Suspect]
     Active Substance: RITUXIMAB
     Indication: Rheumatoid arthritis
     Route: 042
  88. RITUXIMAB [Suspect]
     Active Substance: RITUXIMAB
     Indication: Psoriatic arthropathy
     Route: 065
  89. RITUXIMAB [Suspect]
     Active Substance: RITUXIMAB
     Route: 042
  90. RITUXIMAB [Suspect]
     Active Substance: RITUXIMAB
     Route: 065
  91. RITUXIMAB [Suspect]
     Active Substance: RITUXIMAB
     Route: 065
  92. RITUXIMAB [Suspect]
     Active Substance: RITUXIMAB
     Route: 065
  93. RITUXIMAB [Suspect]
     Active Substance: RITUXIMAB
     Route: 065
  94. RITUXIMAB [Suspect]
     Active Substance: RITUXIMAB
     Route: 065
  95. RITUXIMAB [Suspect]
     Active Substance: RITUXIMAB
     Route: 065
  96. RITUXIMAB [Suspect]
     Active Substance: RITUXIMAB
     Route: 065
  97. RITUXIMAB [Suspect]
     Active Substance: RITUXIMAB
     Route: 065
  98. RITUXIMAB [Suspect]
     Active Substance: RITUXIMAB
     Route: 065
  99. RITUXIMAB [Suspect]
     Active Substance: RITUXIMAB
     Route: 042
  100. RITUXIMAB [Suspect]
     Active Substance: RITUXIMAB
     Route: 065
  101. RITUXIMAB [Suspect]
     Active Substance: RITUXIMAB
     Route: 065
  102. RITUXIMAB [Suspect]
     Active Substance: RITUXIMAB
     Route: 042
  103. RITUXIMAB [Suspect]
     Active Substance: RITUXIMAB
     Route: 042
  104. RITUXIMAB [Suspect]
     Active Substance: RITUXIMAB
     Route: 042
  105. RITUXIMAB [Suspect]
     Active Substance: RITUXIMAB
     Route: 065
  106. RITUXIMAB [Suspect]
     Active Substance: RITUXIMAB
     Route: 065
  107. RITUXIMAB [Suspect]
     Active Substance: RITUXIMAB
     Route: 065
  108. RITUXIMAB [Suspect]
     Active Substance: RITUXIMAB
     Route: 042
  109. RITUXIMAB [Suspect]
     Active Substance: RITUXIMAB
     Route: 042
  110. RITUXIMAB [Suspect]
     Active Substance: RITUXIMAB
     Route: 042
  111. RITUXIMAB [Suspect]
     Active Substance: RITUXIMAB
     Route: 042
  112. RITUXIMAB [Suspect]
     Active Substance: RITUXIMAB
     Route: 042
  113. RITUXIMAB [Suspect]
     Active Substance: RITUXIMAB
     Route: 065
  114. RITUXIMAB [Suspect]
     Active Substance: RITUXIMAB
     Route: 065
  115. RITUXIMAB [Suspect]
     Active Substance: RITUXIMAB
     Route: 042
  116. ADALIMUMAB [Suspect]
     Active Substance: ADALIMUMAB
     Indication: Psoriatic arthropathy
     Route: 058
  117. ADALIMUMAB [Suspect]
     Active Substance: ADALIMUMAB
     Route: 058
  118. ADALIMUMAB [Suspect]
     Active Substance: ADALIMUMAB
     Route: 058
  119. ADALIMUMAB [Suspect]
     Active Substance: ADALIMUMAB
     Route: 058
  120. ADALIMUMAB [Suspect]
     Active Substance: ADALIMUMAB
     Route: 058
  121. ADALIMUMAB [Suspect]
     Active Substance: ADALIMUMAB
     Route: 058
  122. CELEBREX [Suspect]
     Active Substance: CELECOXIB
     Indication: Adenomatous polyposis coli
     Route: 048
  123. CELEBREX [Suspect]
     Active Substance: CELECOXIB
     Route: 048
  124. CELEBREX [Suspect]
     Active Substance: CELECOXIB
     Route: 065
  125. CELEBREX [Suspect]
     Active Substance: CELECOXIB
     Route: 048
  126. CELEBREX [Suspect]
     Active Substance: CELECOXIB
     Route: 048
  127. SULFASALAZINE [Suspect]
     Active Substance: SULFASALAZINE
     Indication: Rheumatoid arthritis
     Route: 065
  128. SULFASALAZINE [Suspect]
     Active Substance: SULFASALAZINE
     Indication: Psoriatic arthropathy
     Route: 065
  129. SULFASALAZINE [Suspect]
     Active Substance: SULFASALAZINE
     Route: 048
  130. SULFASALAZINE [Suspect]
     Active Substance: SULFASALAZINE
     Route: 065
  131. SULFASALAZINE [Suspect]
     Active Substance: SULFASALAZINE
     Route: 065
  132. SULFASALAZINE [Suspect]
     Active Substance: SULFASALAZINE
     Route: 048
  133. SULFASALAZINE [Suspect]
     Active Substance: SULFASALAZINE
     Route: 048
  134. SULFASALAZINE [Suspect]
     Active Substance: SULFASALAZINE
     Route: 048
  135. IBUPROFEN [Suspect]
     Active Substance: IBUPROFEN
     Indication: Product used for unknown indication
     Route: 048
  136. IBUPROFEN [Suspect]
     Active Substance: IBUPROFEN
     Route: 048
  137. IBUPROFEN [Suspect]
     Active Substance: IBUPROFEN
     Route: 048
  138. IBUPROFEN [Suspect]
     Active Substance: IBUPROFEN
     Route: 048
  139. IBUPROFEN [Suspect]
     Active Substance: IBUPROFEN
     Route: 048
  140. IBUPROFEN [Suspect]
     Active Substance: IBUPROFEN
     Route: 048
  141. IBUPROFEN [Suspect]
     Active Substance: IBUPROFEN
     Route: 048
  142. IBUPROFEN [Suspect]
     Active Substance: IBUPROFEN
     Route: 065
  143. IBUPROFEN [Suspect]
     Active Substance: IBUPROFEN
     Route: 048
  144. IBUPROFEN [Suspect]
     Active Substance: IBUPROFEN
     Route: 048
  145. IBUPROFEN [Suspect]
     Active Substance: IBUPROFEN
     Route: 048
  146. IBUPROFEN [Suspect]
     Active Substance: IBUPROFEN
     Route: 048
  147. IBUPROFEN [Suspect]
     Active Substance: IBUPROFEN
     Route: 048
  148. IBUPROFEN [Suspect]
     Active Substance: IBUPROFEN
     Route: 048
  149. IBUPROFEN [Suspect]
     Active Substance: IBUPROFEN
     Route: 048
  150. IBUPROFEN [Suspect]
     Active Substance: IBUPROFEN
     Route: 048
  151. IBUPROFEN [Suspect]
     Active Substance: IBUPROFEN
     Route: 048
  152. CODEINE [Suspect]
     Active Substance: CODEINE
     Indication: Product used for unknown indication
     Route: 065
  153. CODEINE [Suspect]
     Active Substance: CODEINE
     Route: 005
  154. HUMIRA [Suspect]
     Active Substance: ADALIMUMAB
     Indication: Psoriatic arthropathy
     Route: 058
  155. HUMIRA [Suspect]
     Active Substance: ADALIMUMAB
     Route: 058
  156. HUMIRA [Suspect]
     Active Substance: ADALIMUMAB
     Route: 058
  157. HUMIRA [Suspect]
     Active Substance: ADALIMUMAB
     Dosage: 4 EVERY 1 WEEK, CYCLICAL
     Route: 058
  158. HUMIRA [Suspect]
     Active Substance: ADALIMUMAB
     Route: 058
  159. HUMIRA [Suspect]
     Active Substance: ADALIMUMAB
     Route: 058
  160. HUMIRA [Suspect]
     Active Substance: ADALIMUMAB
     Route: 058
  161. HUMIRA [Suspect]
     Active Substance: ADALIMUMAB
     Route: 058
  162. HUMIRA [Suspect]
     Active Substance: ADALIMUMAB
     Route: 058
  163. HUMIRA [Suspect]
     Active Substance: ADALIMUMAB
     Route: 058
  164. HUMIRA [Suspect]
     Active Substance: ADALIMUMAB
     Dosage: (2 EVERY 1 WEEKS)
     Route: 058
  165. HUMIRA [Suspect]
     Active Substance: ADALIMUMAB
     Route: 058
  166. OTEZLA [Suspect]
     Active Substance: APREMILAST
     Indication: Rheumatoid arthritis
     Route: 065
  167. OTEZLA [Suspect]
     Active Substance: APREMILAST
     Indication: Psoriatic arthropathy
     Route: 048
  168. OTEZLA [Suspect]
     Active Substance: APREMILAST
     Indication: Psoriasis
     Route: 048
  169. OTEZLA [Suspect]
     Active Substance: APREMILAST
     Route: 065
  170. OTEZLA [Suspect]
     Active Substance: APREMILAST
     Route: 065
  171. OTEZLA [Suspect]
     Active Substance: APREMILAST
     Route: 065
  172. OTEZLA [Suspect]
     Active Substance: APREMILAST
     Route: 065
  173. OTEZLA [Suspect]
     Active Substance: APREMILAST
     Route: 065
  174. OTEZLA [Suspect]
     Active Substance: APREMILAST
     Route: 048
  175. OTEZLA [Suspect]
     Active Substance: APREMILAST
     Route: 048
  176. ARAVA [Suspect]
     Active Substance: LEFLUNOMIDE
     Indication: Rheumatoid arthritis
     Route: 048
  177. ARAVA [Suspect]
     Active Substance: LEFLUNOMIDE
     Route: 048
  178. ARAVA [Suspect]
     Active Substance: LEFLUNOMIDE
     Route: 048
  179. ARAVA [Suspect]
     Active Substance: LEFLUNOMIDE
     Route: 048
  180. CERTOLIZUMAB PEGOL [Suspect]
     Active Substance: CERTOLIZUMAB PEGOL
     Indication: Psoriatic arthropathy
     Route: 058
  181. CYCLOSPORINE [Suspect]
     Active Substance: CYCLOSPORINE
     Indication: Psoriatic arthropathy
     Route: 065
  182. CYCLOSPORINE [Suspect]
     Active Substance: CYCLOSPORINE
     Route: 048
  183. CYCLOSPORINE [Suspect]
     Active Substance: CYCLOSPORINE
     Route: 048
  184. CYCLOSPORINE [Suspect]
     Active Substance: CYCLOSPORINE
     Route: 048
  185. CYCLOSPORINE [Suspect]
     Active Substance: CYCLOSPORINE
     Route: 065
  186. CYCLOSPORINE [Suspect]
     Active Substance: CYCLOSPORINE
     Route: 065
  187. CYCLOSPORINE [Suspect]
     Active Substance: CYCLOSPORINE
     Route: 048
  188. CYCLOSPORINE [Suspect]
     Active Substance: CYCLOSPORINE
     Route: 048
  189. CYCLOSPORINE [Suspect]
     Active Substance: CYCLOSPORINE
     Route: 065
  190. CYCLOSPORINE [Suspect]
     Active Substance: CYCLOSPORINE
     Route: 065
  191. CYCLOSPORINE [Suspect]
     Active Substance: CYCLOSPORINE
     Route: 048
  192. CIMZIA [Suspect]
     Active Substance: CERTOLIZUMAB PEGOL
     Indication: Psoriatic arthropathy
     Route: 058
  193. CIMZIA [Suspect]
     Active Substance: CERTOLIZUMAB PEGOL
     Route: 065
  194. CIMZIA [Suspect]
     Active Substance: CERTOLIZUMAB PEGOL
     Route: 065
  195. CIMZIA [Suspect]
     Active Substance: CERTOLIZUMAB PEGOL
     Route: 065
  196. CIMZIA [Suspect]
     Active Substance: CERTOLIZUMAB PEGOL
     Route: 058
  197. CIMZIA [Suspect]
     Active Substance: CERTOLIZUMAB PEGOL
     Dosage: SOLUTION FOR INJECTION IN PRE-FILLED SYRINGE
     Route: 058
  198. COSENTYX [Suspect]
     Active Substance: SECUKINUMAB
     Indication: Psoriatic arthropathy
     Route: 065
  199. COSENTYX [Suspect]
     Active Substance: SECUKINUMAB
     Route: 058
  200. COSENTYX [Suspect]
     Active Substance: SECUKINUMAB
     Route: 065
  201. ERELZI [Suspect]
     Active Substance: ETANERCEPT-SZZS
     Indication: Rheumatoid arthritis
     Route: 065
  202. ERELZI [Suspect]
     Active Substance: ETANERCEPT-SZZS
     Indication: Psoriatic arthropathy
     Route: 058
  203. ERELZI [Suspect]
     Active Substance: ETANERCEPT-SZZS
     Indication: Psoriasis
     Route: 065
  204. ERELZI [Suspect]
     Active Substance: ETANERCEPT-SZZS
     Route: 065
  205. ERELZI [Suspect]
     Active Substance: ETANERCEPT-SZZS
     Route: 058
  206. ERELZI [Suspect]
     Active Substance: ETANERCEPT-SZZS
     Route: 065
  207. ERELZI [Suspect]
     Active Substance: ETANERCEPT-SZZS
     Route: 058
  208. ERELZI [Suspect]
     Active Substance: ETANERCEPT-SZZS
     Dosage: 25 MILLIGRAM ( 2 EVERY 1 WEEKS)
     Route: 065
  209. ERELZI [Suspect]
     Active Substance: ETANERCEPT-SZZS
     Dosage: 2 EVERY 1 WEEKS
     Route: 065
  210. GOLIMUMAB [Suspect]
     Active Substance: GOLIMUMAB
     Indication: Psoriatic arthropathy
     Route: 058
  211. FOSAMAX [Suspect]
     Active Substance: ALENDRONATE SODIUM
     Indication: Product used for unknown indication
     Route: 065
  212. FOSAMAX [Suspect]
     Active Substance: ALENDRONATE SODIUM
     Route: 065
  213. HYDROXYCHLOROQUINE SULFATE [Suspect]
     Active Substance: HYDROXYCHLOROQUINE SULFATE
     Indication: Rheumatoid arthritis
     Route: 065
  214. HYDROXYCHLOROQUINE SULFATE [Suspect]
     Active Substance: HYDROXYCHLOROQUINE SULFATE
     Route: 065
  215. HYDROXYCHLOROQUINE SULFATE [Suspect]
     Active Substance: HYDROXYCHLOROQUINE SULFATE
     Route: 065
  216. HYDROXYCHLOROQUINE SULFATE [Suspect]
     Active Substance: HYDROXYCHLOROQUINE SULFATE
     Route: 048
  217. HYDROXYCHLOROQUINE SULFATE [Suspect]
     Active Substance: HYDROXYCHLOROQUINE SULFATE
     Route: 065
  218. HYDROXYCHLOROQUINE SULFATE [Suspect]
     Active Substance: HYDROXYCHLOROQUINE SULFATE
     Route: 065
  219. HYDROXYCHLOROQUINE SULFATE [Suspect]
     Active Substance: HYDROXYCHLOROQUINE SULFATE
     Route: 065
  220. HYDROXYCHLOROQUINE SULFATE [Suspect]
     Active Substance: HYDROXYCHLOROQUINE SULFATE
     Route: 048
  221. HYDROXYCHLOROQUINE SULFATE [Suspect]
     Active Substance: HYDROXYCHLOROQUINE SULFATE
     Route: 065
  222. HYDROXYCHLOROQUINE SULFATE [Suspect]
     Active Substance: HYDROXYCHLOROQUINE SULFATE
     Route: 048
  223. HYDROXYCHLOROQUINE SULFATE [Suspect]
     Active Substance: HYDROXYCHLOROQUINE SULFATE
     Route: 048
  224. HYDROXYCHLOROQUINE SULFATE [Suspect]
     Active Substance: HYDROXYCHLOROQUINE SULFATE
     Route: 048
  225. HYDROXYCHLOROQUINE SULFATE [Suspect]
     Active Substance: HYDROXYCHLOROQUINE SULFATE
     Route: 048
  226. HYDROXYCHLOROQUINE SULFATE [Suspect]
     Active Substance: HYDROXYCHLOROQUINE SULFATE
     Route: 048
  227. HYDROXYCHLOROQUINE SULFATE [Suspect]
     Active Substance: HYDROXYCHLOROQUINE SULFATE
     Route: 065
  228. HYDROXYCHLOROQUINE SULFATE [Suspect]
     Active Substance: HYDROXYCHLOROQUINE SULFATE
     Route: 065
  229. HYDROXYCHLOROQUINE SULFATE [Suspect]
     Active Substance: HYDROXYCHLOROQUINE SULFATE
     Route: 065
  230. LEFLUNOMIDE [Suspect]
     Active Substance: LEFLUNOMIDE
     Indication: Psoriatic arthropathy
     Route: 065
  231. LEFLUNOMIDE [Suspect]
     Active Substance: LEFLUNOMIDE
     Route: 048
  232. LEFLUNOMIDE [Suspect]
     Active Substance: LEFLUNOMIDE
     Route: 048
  233. LEFLUNOMIDE [Suspect]
     Active Substance: LEFLUNOMIDE
     Route: 048
  234. MOTRIN [Suspect]
     Active Substance: IBUPROFEN
     Indication: Product used for unknown indication
     Route: 048
  235. MOTRIN [Suspect]
     Active Substance: IBUPROFEN
     Route: 048
  236. MOTRIN [Suspect]
     Active Substance: IBUPROFEN
     Route: 048
  237. MOTRIN [Suspect]
     Active Substance: IBUPROFEN
     Route: 065
  238. MOTRIN [Suspect]
     Active Substance: IBUPROFEN
     Route: 048
  239. MOTRIN [Suspect]
     Active Substance: IBUPROFEN
     Route: 048
  240. MOTRIN [Suspect]
     Active Substance: IBUPROFEN
     Route: 065
  241. MOTRIN [Suspect]
     Active Substance: IBUPROFEN
     Route: 048
  242. MOTRIN [Suspect]
     Active Substance: IBUPROFEN
     Route: 065
  243. MOTRIN [Suspect]
     Active Substance: IBUPROFEN
     Route: 048
  244. MOTRIN [Suspect]
     Active Substance: IBUPROFEN
     Route: 048
  245. MOTRIN [Suspect]
     Active Substance: IBUPROFEN
     Route: 048
  246. MOTRIN [Suspect]
     Active Substance: IBUPROFEN
     Route: 048
  247. MOTRIN [Suspect]
     Active Substance: IBUPROFEN
     Route: 048
  248. MOTRIN [Suspect]
     Active Substance: IBUPROFEN
     Route: 048
  249. ORENCIA [Suspect]
     Active Substance: ABATACEPT
     Indication: Rheumatoid arthritis
     Route: 058
  250. ORENCIA [Suspect]
     Active Substance: ABATACEPT
     Indication: Psoriatic arthropathy
     Route: 065
  251. ORENCIA [Suspect]
     Active Substance: ABATACEPT
     Route: 065
  252. ORENCIA [Suspect]
     Active Substance: ABATACEPT
     Route: 042
  253. ORENCIA [Suspect]
     Active Substance: ABATACEPT
     Route: 058
  254. ORENCIA [Suspect]
     Active Substance: ABATACEPT
     Route: 042
  255. REMICADE [Suspect]
     Active Substance: INFLIXIMAB
     Indication: Product used for unknown indication
     Route: 042
  256. REMICADE [Suspect]
     Active Substance: INFLIXIMAB
     Route: 042
  257. REMICADE [Suspect]
     Active Substance: INFLIXIMAB
     Route: 058
  258. REMICADE [Suspect]
     Active Substance: INFLIXIMAB
     Route: 042
  259. SIMPONI [Suspect]
     Active Substance: GOLIMUMAB
     Indication: Psoriatic arthropathy
     Route: 058
  260. SIMPONI [Suspect]
     Active Substance: GOLIMUMAB
     Route: 058
  261. SIMPONI [Suspect]
     Active Substance: GOLIMUMAB
     Route: 058
  262. SIMPONI [Suspect]
     Active Substance: GOLIMUMAB
     Route: 065
  263. SIMPONI [Suspect]
     Active Substance: GOLIMUMAB
     Route: 058
  264. SIMPONI [Suspect]
     Active Substance: GOLIMUMAB
     Route: 058
  265. SIMPONI [Suspect]
     Active Substance: GOLIMUMAB
     Route: 058
  266. SIMPONI [Suspect]
     Active Substance: GOLIMUMAB
     Route: 058
  267. SIMPONI [Suspect]
     Active Substance: GOLIMUMAB
     Route: 058
  268. SIMPONI [Suspect]
     Active Substance: GOLIMUMAB
     Route: 065
  269. STELARA [Suspect]
     Active Substance: USTEKINUMAB
     Indication: Psoriatic arthropathy
     Route: 065
  270. STELARA [Suspect]
     Active Substance: USTEKINUMAB
     Route: 058
  271. STELARA [Suspect]
     Active Substance: USTEKINUMAB
     Route: 058
  272. STELARA [Suspect]
     Active Substance: USTEKINUMAB
     Route: 058
  273. STELARA [Suspect]
     Active Substance: USTEKINUMAB
     Route: 065
  274. STELARA [Suspect]
     Active Substance: USTEKINUMAB
     Route: 065
  275. STELARA [Suspect]
     Active Substance: USTEKINUMAB
     Route: 048
  276. STELARA [Suspect]
     Active Substance: USTEKINUMAB
     Route: 058
  277. STELARA [Suspect]
     Active Substance: USTEKINUMAB
     Route: 065
  278. SULFAMETHOXAZOLE [Suspect]
     Active Substance: SULFAMETHOXAZOLE
     Indication: Product used for unknown indication
     Route: 048
  279. TOCILIZUMAB [Suspect]
     Active Substance: TOCILIZUMAB
     Indication: Rheumatoid arthritis
     Route: 065
  280. TOCILIZUMAB [Suspect]
     Active Substance: TOCILIZUMAB
     Route: 065
  281. USTEKINUMAB [Suspect]
     Active Substance: USTEKINUMAB
     Indication: Psoriatic arthropathy
     Route: 058
  282. USTEKINUMAB [Suspect]
     Active Substance: USTEKINUMAB
     Route: 048
  283. USTEKINUMAB [Suspect]
     Active Substance: USTEKINUMAB
     Route: 058
  284. USTEKINUMAB [Suspect]
     Active Substance: USTEKINUMAB
     Route: 058
  285. ACTEMRA [Suspect]
     Active Substance: TOCILIZUMAB
     Indication: Rheumatoid arthritis
     Route: 065
  286. ACTEMRA [Suspect]
     Active Substance: TOCILIZUMAB
     Route: 065
  287. ACTEMRA [Suspect]
     Active Substance: TOCILIZUMAB
     Route: 065
  288. ACTEMRA [Suspect]
     Active Substance: TOCILIZUMAB
     Route: 065
  289. ACTEMRA [Suspect]
     Active Substance: TOCILIZUMAB
     Route: 065
  290. ACTEMRA [Suspect]
     Active Substance: TOCILIZUMAB
     Route: 065
  291. ACTEMRA [Suspect]
     Active Substance: TOCILIZUMAB
     Route: 065
  292. ACTEMRA [Suspect]
     Active Substance: TOCILIZUMAB
     Route: 065
  293. ACTEMRA [Suspect]
     Active Substance: TOCILIZUMAB
     Route: 065
  294. ACTEMRA [Suspect]
     Active Substance: TOCILIZUMAB
     Route: 042
  295. ACTEMRA [Suspect]
     Active Substance: TOCILIZUMAB
     Route: 042
  296. ACTEMRA [Suspect]
     Active Substance: TOCILIZUMAB
     Route: 042
  297. ACTEMRA [Suspect]
     Active Substance: TOCILIZUMAB
     Route: 048
  298. ACTEMRA [Suspect]
     Active Substance: TOCILIZUMAB
     Route: 065
  299. ALENDRONATE SODIUM [Suspect]
     Active Substance: ALENDRONATE SODIUM
     Indication: Product used for unknown indication
     Route: 065
  300. ALENDRONATE SODIUM [Suspect]
     Active Substance: ALENDRONATE SODIUM
     Dosage: 4 TIMES/WK
     Route: 065
  301. ALENDRONATE SODIUM [Suspect]
     Active Substance: ALENDRONATE SODIUM
     Dosage: 4 TIMES/WK
     Route: 065
  302. ALENDRONATE SODIUM [Suspect]
     Active Substance: ALENDRONATE SODIUM
     Route: 048
  303. ALENDRONATE SODIUM [Suspect]
     Active Substance: ALENDRONATE SODIUM
     Route: 065
  304. ALENDRONATE SODIUM [Suspect]
     Active Substance: ALENDRONATE SODIUM
     Route: 065
  305. ALENDRONATE SODIUM [Suspect]
     Active Substance: ALENDRONATE SODIUM
     Route: 065
  306. IBUPROFEN [Suspect]
     Active Substance: IBUPROFEN
     Indication: Product used for unknown indication
     Route: 065
  307. IBUPROFEN [Suspect]
     Active Substance: IBUPROFEN
     Route: 048
  308. IBUPROFEN [Suspect]
     Active Substance: IBUPROFEN
     Route: 048
  309. IBUPROFEN [Suspect]
     Active Substance: IBUPROFEN
     Route: 065
  310. IBUPROFEN [Suspect]
     Active Substance: IBUPROFEN
     Route: 048
  311. IBUPROFEN [Suspect]
     Active Substance: IBUPROFEN
     Route: 048
  312. LEFLUNOMIDE [Suspect]
     Active Substance: LEFLUNOMIDE
     Indication: Rheumatoid arthritis
     Route: 065
  313. LEFLUNOMIDE [Suspect]
     Active Substance: LEFLUNOMIDE
     Route: 048
  314. LEFLUNOMIDE [Suspect]
     Active Substance: LEFLUNOMIDE
     Route: 048
  315. LEFLUNOMIDE [Suspect]
     Active Substance: LEFLUNOMIDE
     Route: 065
  316. LEFLUNOMIDE [Suspect]
     Active Substance: LEFLUNOMIDE
     Route: 065
  317. LEFLUNOMIDE [Suspect]
     Active Substance: LEFLUNOMIDE
     Route: 048
  318. LEFLUNOMIDE [Suspect]
     Active Substance: LEFLUNOMIDE
     Route: 048
  319. LEFLUNOMIDE [Suspect]
     Active Substance: LEFLUNOMIDE
     Route: 048
  320. LEFLUNOMIDE [Suspect]
     Active Substance: LEFLUNOMIDE
     Route: 048
  321. LEFLUNOMIDE [Suspect]
     Active Substance: LEFLUNOMIDE
     Route: 065
  322. LEFLUNOMIDE [Suspect]
     Active Substance: LEFLUNOMIDE
     Route: 048
  323. LEFLUNOMIDE [Suspect]
     Active Substance: LEFLUNOMIDE
     Route: 048
  324. LEFLUNOMIDE [Suspect]
     Active Substance: LEFLUNOMIDE
     Route: 048
  325. LEFLUNOMIDE [Suspect]
     Active Substance: LEFLUNOMIDE
     Route: 065
  326. LEFLUNOMIDE [Suspect]
     Active Substance: LEFLUNOMIDE
     Route: 048
  327. LEFLUNOMIDE [Suspect]
     Active Substance: LEFLUNOMIDE
     Route: 048
  328. LEFLUNOMIDE [Suspect]
     Active Substance: LEFLUNOMIDE
     Route: 065
  329. LEFLUNOMIDE [Suspect]
     Active Substance: LEFLUNOMIDE
     Route: 048
  330. LEFLUNOMIDE [Suspect]
     Active Substance: LEFLUNOMIDE
     Route: 048
  331. DIPHENHYDRAMINE HYDROCHLORIDE [Suspect]
     Active Substance: DIPHENHYDRAMINE HYDROCHLORIDE
     Indication: Product used for unknown indication
     Route: 065
  332. MYOCHRYSINE [Suspect]
     Active Substance: GOLD SODIUM THIOMALATE
     Indication: Rheumatoid arthritis
     Route: 030
  333. ALENDRONIC ACID [Suspect]
     Active Substance: ALENDRONIC ACID
     Indication: Product used for unknown indication
     Route: 065
  334. ALENDRONIC ACID [Suspect]
     Active Substance: ALENDRONIC ACID
     Route: 065
  335. BISOPROLOL [Suspect]
     Active Substance: BISOPROLOL
     Indication: Product used for unknown indication
     Route: 065
  336. GOLD [Suspect]
     Active Substance: GOLD
     Indication: Product used for unknown indication
     Route: 065
  337. SODIUM AUROTIOSULFATE [Suspect]
     Active Substance: SODIUM AUROTIOSULFATE
     Indication: Product used for unknown indication
     Route: 065
  338. PIROXICAM [Suspect]
     Active Substance: PIROXICAM
     Indication: Product used for unknown indication
     Route: 065
  339. XELJANZ [Suspect]
     Active Substance: TOFACITINIB CITRATE
     Indication: Product used for unknown indication
     Route: 048
  340. XELJANZ [Suspect]
     Active Substance: TOFACITINIB CITRATE
     Route: 065
  341. XELJANZ [Suspect]
     Active Substance: TOFACITINIB CITRATE
     Route: 065
  342. HYDROXYCHLOROQUINE [Suspect]
     Active Substance: HYDROXYCHLOROQUINE
     Indication: Product used for unknown indication
     Route: 065
  343. NAPROXEN [Suspect]
     Active Substance: NAPROXEN
     Indication: Product used for unknown indication
     Route: 065
  344. BENADRYL [Concomitant]
     Active Substance: DIPHENHYDRAMINE HYDROCHLORIDE
     Route: 065
  345. CANNABIS SATIVA FLOWERING TOP [Concomitant]
     Active Substance: CANNABIS SATIVA FLOWERING TOP
     Route: 065
  346. CHOLECALCIFEROL [Concomitant]
     Active Substance: CHOLECALCIFEROL
     Route: 048
  347. COLCHICINE [Concomitant]
     Active Substance: COLCHICINE
     Route: 065
  348. COLCHICINE [Concomitant]
     Active Substance: COLCHICINE
     Route: 048
  349. DEXILANT [Concomitant]
     Active Substance: DEXLANSOPRAZOLE
     Route: 065
  350. DEXILANT [Concomitant]
     Active Substance: DEXLANSOPRAZOLE
     Route: 065
  351. FEBUXOSTAT [Concomitant]
     Active Substance: FEBUXOSTAT
     Route: 065
  352. FEBUXOSTAT [Concomitant]
     Active Substance: FEBUXOSTAT
     Route: 065
  353. FEBUXOSTAT [Concomitant]
     Active Substance: FEBUXOSTAT
     Route: 065
  354. FOLIC ACID [Concomitant]
     Active Substance: FOLIC ACID
     Route: 065
  355. FOLIC ACID [Concomitant]
     Active Substance: FOLIC ACID
     Route: 065
  356. GRAVOL [Concomitant]
     Active Substance: DIMENHYDRINATE
     Route: 065
  357. NITRAZEPAM [Concomitant]
     Active Substance: NITRAZEPAM
     Route: 065
  358. NITRAZEPAM [Concomitant]
     Active Substance: NITRAZEPAM
     Route: 065
  359. NAPROXEN [Concomitant]
     Active Substance: NAPROXEN
     Route: 065
  360. NAPROXEN [Concomitant]
     Active Substance: NAPROXEN
     Route: 065
  361. NITRAZEPAM [Concomitant]
     Active Substance: NITRAZEPAM
     Route: 048
  362. NITRAZEPAM [Concomitant]
     Active Substance: NITRAZEPAM
     Route: 048
  363. NITRAZEPAM [Concomitant]
     Active Substance: NITRAZEPAM
     Route: 065
  364. NITRAZEPAM [Concomitant]
     Active Substance: NITRAZEPAM
     Route: 065
  365. OXYCODONE [Concomitant]
     Active Substance: OXYCODONE
     Route: 065
  366. OXYCODONE [Concomitant]
     Active Substance: OXYCODONE
     Route: 065
  367. OXYCODONE [Concomitant]
     Active Substance: OXYCODONE
     Route: 065
  368. OXYCODONE [Concomitant]
     Active Substance: OXYCODONE
     Route: 065
  369. OXYCODONE [Concomitant]
     Active Substance: OXYCODONE
     Route: 065
  370. OXYCODONE HYDROCHLORIDE [Concomitant]
     Active Substance: OXYCODONE HYDROCHLORIDE
     Route: 065
  371. OXYCODONE HYDROCHLORIDE [Concomitant]
     Active Substance: OXYCODONE HYDROCHLORIDE
     Route: 065
  372. OXYCODONE HYDROCHLORIDE [Concomitant]
     Active Substance: OXYCODONE HYDROCHLORIDE
     Route: 065
  373. OXYCODONE HYDROCHLORIDE [Concomitant]
     Active Substance: OXYCODONE HYDROCHLORIDE
     Route: 065
  374. OXYCODONE [Concomitant]
     Active Substance: OXYCODONE
     Route: 065
  375. OXYCODONE [Concomitant]
     Active Substance: OXYCODONE
     Route: 065
  376. PREDNISONE [Concomitant]
     Active Substance: PREDNISONE
     Route: 065
  377. PREDNISONE [Concomitant]
     Active Substance: PREDNISONE
     Route: 065
  378. PREDNISONE [Concomitant]
     Active Substance: PREDNISONE
     Route: 065
  379. RISEDRONATE SODIUM [Concomitant]
     Active Substance: RISEDRONATE SODIUM
     Route: 065
  380. ULORIC [Concomitant]
     Active Substance: FEBUXOSTAT
     Route: 065
  381. ULORIC [Concomitant]
     Active Substance: FEBUXOSTAT
     Route: 048
  382. ULORIC [Concomitant]
     Active Substance: FEBUXOSTAT
     Route: 065
  383. ULORIC [Concomitant]
     Active Substance: FEBUXOSTAT
     Route: 065
  384. ULORIC [Concomitant]
     Active Substance: FEBUXOSTAT
     Route: 048
  385. ULORIC [Concomitant]
     Active Substance: FEBUXOSTAT
     Route: 048
  386. ULORIC [Concomitant]
     Active Substance: FEBUXOSTAT
     Route: 048
  387. XELJANZ [Concomitant]
     Active Substance: TOFACITINIB CITRATE
     Route: 065
  388. XELJANZ [Concomitant]
     Active Substance: TOFACITINIB CITRATE
     Route: 065
  389. DESOXIMETASONE [Concomitant]
     Active Substance: DESOXIMETASONE
     Route: 048
  390. DESOXIMETASONE [Concomitant]
     Active Substance: DESOXIMETASONE
     Route: 065
  391. AZATHIOPRINE [Concomitant]
     Active Substance: AZATHIOPRINE
     Route: 065
  392. METHOTREXATE [Concomitant]
     Active Substance: METHOTREXATE
     Route: 065
  393. AZATHIOPRINE [Concomitant]
     Active Substance: AZATHIOPRINE
     Route: 065
  394. AZATHIOPRINE [Concomitant]
     Active Substance: AZATHIOPRINE
     Route: 048

REACTIONS (78)
  - Contraindicated product administered [Not Recovered/Not Resolved]
  - Off label use [Not Recovered/Not Resolved]
  - Product use issue [Not Recovered/Not Resolved]
  - Therapeutic product effect incomplete [Not Recovered/Not Resolved]
  - Therapeutic product effect decreased [Not Recovered/Not Resolved]
  - Therapy non-responder [Not Recovered/Not Resolved]
  - Treatment failure [Not Recovered/Not Resolved]
  - Drug ineffective [Unknown]
  - Therapeutic response decreased [Not Recovered/Not Resolved]
  - Overdose [Not Recovered/Not Resolved]
  - Alanine aminotransferase abnormal [Not Recovered/Not Resolved]
  - Alanine aminotransferase increased [Not Recovered/Not Resolved]
  - Arthritis [Not Recovered/Not Resolved]
  - Aspartate aminotransferase increased [Not Recovered/Not Resolved]
  - Basal cell carcinoma [Not Recovered/Not Resolved]
  - Blood creatinine increased [Not Recovered/Not Resolved]
  - Blood parathyroid hormone decreased [Not Recovered/Not Resolved]
  - Blood pressure systolic increased [Not Recovered/Not Resolved]
  - C-reactive protein abnormal [Not Recovered/Not Resolved]
  - Drug eruption [Not Recovered/Not Resolved]
  - Drug hypersensitivity [Not Recovered/Not Resolved]
  - Drug intolerance [Not Recovered/Not Resolved]
  - Enthesopathy [Not Recovered/Not Resolved]
  - Erythema [Not Recovered/Not Resolved]
  - Fear of injection [Not Recovered/Not Resolved]
  - General physical health deterioration [Not Recovered/Not Resolved]
  - Granuloma skin [Not Recovered/Not Resolved]
  - Hypercalcaemia [Not Recovered/Not Resolved]
  - Inflammation [Not Recovered/Not Resolved]
  - Joint injury [Not Recovered/Not Resolved]
  - Joint swelling [Not Recovered/Not Resolved]
  - Loss of personal independence in daily activities [Not Recovered/Not Resolved]
  - Musculoskeletal stiffness [Not Recovered/Not Resolved]
  - Panniculitis [Not Recovered/Not Resolved]
  - Peripheral swelling [Not Recovered/Not Resolved]
  - Rash pruritic [Not Recovered/Not Resolved]
  - Red blood cell sedimentation rate abnormal [Not Recovered/Not Resolved]
  - Red blood cell sedimentation rate increased [Not Recovered/Not Resolved]
  - Rheumatoid arthritis [Not Recovered/Not Resolved]
  - Rheumatoid nodule [Not Recovered/Not Resolved]
  - Skin necrosis [Not Recovered/Not Resolved]
  - Skin ulcer [Not Recovered/Not Resolved]
  - Synovitis [Not Recovered/Not Resolved]
  - Tendonitis [Not Recovered/Not Resolved]
  - Tenosynovitis [Not Recovered/Not Resolved]
  - Tongue disorder [Not Recovered/Not Resolved]
  - Ulcer [Not Recovered/Not Resolved]
  - Arthralgia [Not Recovered/Not Resolved]
  - Fatigue [Not Recovered/Not Resolved]
  - Insomnia [Not Recovered/Not Resolved]
  - Pain [Not Recovered/Not Resolved]
  - Psoriatic arthropathy [Not Recovered/Not Resolved]
  - Rash [Not Recovered/Not Resolved]
  - Urticaria [Not Recovered/Not Resolved]
  - Abdominal discomfort [Not Recovered/Not Resolved]
  - Decreased appetite [Not Recovered/Not Resolved]
  - Headache [Not Recovered/Not Resolved]
  - Nausea [Not Recovered/Not Resolved]
  - Diarrhoea [Unknown]
  - Granuloma [Not Recovered/Not Resolved]
  - C-reactive protein increased [Not Recovered/Not Resolved]
  - Hypertension [Unknown]
  - White blood cell count decreased [Unknown]
  - Drug-induced liver injury [Unknown]
  - Alopecia [Not Recovered/Not Resolved]
  - Condition aggravated [Not Recovered/Not Resolved]
  - Drug tolerance decreased [Not Recovered/Not Resolved]
  - Gastric disorder [Not Recovered/Not Resolved]
  - Malaise [Not Recovered/Not Resolved]
  - Mobility decreased [Not Recovered/Not Resolved]
  - Musculoskeletal disorder [Not Recovered/Not Resolved]
  - Osteomyelitis [Not Recovered/Not Resolved]
  - Pulmonary fibrosis [Not Recovered/Not Resolved]
  - Rheumatoid lung [Not Recovered/Not Resolved]
  - Drug tolerance [Not Recovered/Not Resolved]
  - Uveitis [Not Recovered/Not Resolved]
  - Liver function test increased [Not Recovered/Not Resolved]
  - Hypersensitivity [Not Recovered/Not Resolved]
